FAERS Safety Report 23761757 (Version 1)
Quarter: 2024Q2

REPORT INFORMATION
  Report Type: Spontaneous
  Country: IL (occurrence: IL)
  Receive Date: 20240419
  Receipt Date: 20240419
  Transmission Date: 20240716
  Serious: Yes (Other)
  Sender: FDA-Public Use
  Company Number: IL-BoehringerIngelheim-2024-BI-022775

PATIENT
  Age: 36 Year
  Sex: Male

DRUGS (1)
  1. OFEV [Suspect]
     Active Substance: NINTEDANIB
     Indication: Idiopathic pulmonary fibrosis
     Dosage: ABOUT A YEAR

REACTIONS (2)
  - Idiopathic pulmonary fibrosis [Not Recovered/Not Resolved]
  - Lung diffusion test decreased [Not Recovered/Not Resolved]
